FAERS Safety Report 4773366-0 (Version None)
Quarter: 2005Q3

REPORT INFORMATION
  Report Type: 
  Country: None (occurrence: None)
  Receive Date: 20050916
  Receipt Date: 20050909
  Transmission Date: 20060218
  Serious: Yes (Hospitalization)
  Sender: FDA-Public Use
  Company Number: HQWYE746616MAY05

PATIENT
  Age: 67 Year
  Sex: Male
  Weight: 91.25 kg

DRUGS (18)
  1. RAPAMUNE [Suspect]
     Indication: PROPHYLAXIS AGAINST TRANSPLANT REJECTION
     Dosage: 7 MG 1X PER 1 DAY, ORAL
     Route: 048
     Dates: start: 20050313
  2. ACETAMINOPHEN [Concomitant]
  3. ASPIRIN [Concomitant]
  4. ATENOLOL [Concomitant]
  5. ATORVASTATIN CALCIUM [Concomitant]
  6. CLONIDINE [Concomitant]
  7. DIPHENHYDRAMINE HCL [Concomitant]
  8. EPOETIN ALFA (EPOETIN ALFA) [Concomitant]
  9. FAMOTIDINE (FOMOTIDINE) [Concomitant]
  10. FERROUS SULFATE TAB [Concomitant]
  11. FUROSEMIDE (FURMOSEMIDE) [Concomitant]
  12. HUMULIN 70/30 [Concomitant]
  13. NIFEDIPINE [Concomitant]
  14. POTASSIUM CHLORIDE [Concomitant]
  15. SPIRONOLACTONE [Concomitant]
  16. SULFAMETHOXAZOLE + TRIMETHOPRIM [Concomitant]
  17. TERAZOSIN (TERAZOSIN) [Concomitant]
  18. HUMULIN R [Concomitant]

REACTIONS (25)
  - ASTHENIA [None]
  - ATHEROSCLEROSIS [None]
  - ATRIAL FIBRILLATION [None]
  - BLOOD CREATININE INCREASED [None]
  - BLOOD GLUCOSE INCREASED [None]
  - BLOOD POTASSIUM DECREASED [None]
  - BLOOD SODIUM DECREASED [None]
  - BLOOD UREA INCREASED [None]
  - CARDIOMEGALY [None]
  - DEPRESSED LEVEL OF CONSCIOUSNESS [None]
  - DIASTOLIC DYSFUNCTION [None]
  - GRANULOMA [None]
  - HYPERPLASIA [None]
  - HYPOKALAEMIA [None]
  - INTERSTITIAL LUNG DISEASE [None]
  - KIDNEY SMALL [None]
  - LYMPHOPENIA [None]
  - NORMOCHROMIC NORMOCYTIC ANAEMIA [None]
  - PANCREATIC ATROPHY [None]
  - PLATELET COUNT DECREASED [None]
  - PLEURAL EFFUSION [None]
  - PNEUMONIA [None]
  - PULMONARY CONGESTION [None]
  - RENAL LIPOMATOSIS [None]
  - TROPONIN T INCREASED [None]
